FAERS Safety Report 13802582 (Version 1)
Quarter: 2017Q3

REPORT INFORMATION
  Report Type: Spontaneous
  Country: US (occurrence: US)
  Receive Date: 20170727
  Receipt Date: 20170727
  Transmission Date: 20171127
  Serious: Yes (Other)
  Sender: FDA-Public Use
  Company Number: None

PATIENT
  Age: 46 Year
  Sex: Female
  Weight: 70.37 kg

DRUGS (22)
  1. ADDERALL XR (AMPHETAMINE-DEXTROAMPHETAMINE) [Concomitant]
  2. WELLBUTRIN XL (BUPROPION HCL) [Concomitant]
  3. ULTRAM (TRAMADOL HCL) [Concomitant]
  4. VYVANSE [Concomitant]
     Active Substance: LISDEXAMFETAMINE DIMESYLATE
  5. LUPRON DEPOT (LEUPROLIDE ACETATE) [Concomitant]
  6. DEPO-MEDROL (METHYLPREDNISOLONE ACETATE) [Concomitant]
  7. ADDERALL (AMPHETAMINE-DEXTROAMPHETAMINE) [Concomitant]
  8. FLEXERIL (CYCLOBENZAPRINE HCL) [Concomitant]
  9. WELLBUTRIN SR (BUPROPION HCL) [Concomitant]
  10. BUPROPION. [Suspect]
     Active Substance: BUPROPION
     Indication: ANXIETY
     Route: 048
     Dates: start: 20100319, end: 20170620
  11. ADIPEX (PHENTERMINE HCL) [Concomitant]
  12. LOVAZA (OMEGA-3 ACID ETHYL ESTERS) [Concomitant]
  13. VALTREX (VALACYCLOVIR HCL) [Concomitant]
  14. MIRENA IUD (LEVONORGESTREL IUD) [Concomitant]
  15. VITAMIN D [Concomitant]
     Active Substance: CHOLECALCIFEROL
  16. ALPRAZOLAM. [Concomitant]
     Active Substance: ALPRAZOLAM
  17. BUPROPION. [Suspect]
     Active Substance: BUPROPION
     Indication: DEPRESSION
     Route: 048
     Dates: start: 20100319, end: 20170620
  18. MULTIVITAMIN [Concomitant]
     Active Substance: VITAMINS
  19. TRAZODONE [Concomitant]
     Active Substance: TRAZODONE HYDROCHLORIDE
  20. CYTOMEL (LIOTHYRONINE SODIUM) [Concomitant]
  21. ACYCLOVIR. [Concomitant]
     Active Substance: ACYCLOVIR
  22. AMBIEN [Concomitant]
     Active Substance: ZOLPIDEM TARTRATE

REACTIONS (1)
  - Viral infection [None]

NARRATIVE: CASE EVENT DATE: 20160620
